FAERS Safety Report 9773226 (Version 5)
Quarter: 2014Q2

REPORT INFORMATION
  Report Type: Report from Study
  Country: US (occurrence: US)
  Receive Date: 20131219
  Receipt Date: 20140408
  Transmission Date: 20141212
  Serious: Yes (Hospitalization, Other)
  Sender: FDA-Public Use
  Company Number: US-PURDUE-USA-2013-0106646

PATIENT
  Sex: Male

DRUGS (3)
  1. OXY CR TAB [Suspect]
     Indication: PRODUCT USED FOR UNKNOWN INDICATION
     Dosage: 2-3 80 MG TABLETS QAM, 2 80 MG TABLETS QHS
     Route: 048
     Dates: start: 20140307
  2. OXY CR TAB [Suspect]
     Dosage: 80 MG, SEE TEXT
     Route: 048
     Dates: start: 20131113, end: 20131210
  3. LISINOPRIL [Concomitant]
     Indication: HYPERTENSION
     Dosage: UNKNOWN
     Route: 048

REACTIONS (6)
  - Hypertension [Recovered/Resolved]
  - Investigation abnormal [Not Recovered/Not Resolved]
  - Chronic obstructive pulmonary disease [Unknown]
  - Weight decreased [Recovered/Resolved]
  - Incorrect dose administered [Recovered/Resolved]
  - Tooth disorder [Unknown]
